FAERS Safety Report 19189914 (Version 1)
Quarter: 2021Q2

REPORT INFORMATION
  Report Type: Spontaneous
  Country: NL (occurrence: DK)
  Receive Date: 20210428
  Receipt Date: 20210428
  Transmission Date: 20210717
  Serious: Yes (Hospitalization)
  Sender: FDA-Public Use
  Company Number: DK-FRESENIUS KABI-FK202104110

PATIENT
  Age: 77 Year
  Sex: Female
  Weight: 108 kg

DRUGS (1)
  1. ZOLEDRONIC ACID [Suspect]
     Active Substance: ZOLEDRONIC ACID
     Indication: BREAST CANCER
     Dosage: DOSAGE: FIRST TIME INFUSION OF ZOLEDRONIC ACID, STRENGTH: 4 MG/5 ML?PHARMACEUTICAL DOSE FORM (FREE T
     Route: 042
     Dates: start: 20210309

REACTIONS (4)
  - Chills [Unknown]
  - Malaise [Unknown]
  - Pyrexia [Unknown]
  - Cystitis [Recovered/Resolved]

NARRATIVE: CASE EVENT DATE: 20210310
